FAERS Safety Report 15884880 (Version 4)
Quarter: 2019Q2

REPORT INFORMATION
  Report Type: Report from Study
  Country: TW (occurrence: TW)
  Receive Date: 20190129
  Receipt Date: 20190524
  Transmission Date: 20190711
  Serious: Yes (Death, Hospitalization, Other)
  Sender: FDA-Public Use
  Company Number: TW-INCYTE CORPORATION-2019IN000546

PATIENT

DRUGS (7)
  1. JAKAVI [Suspect]
     Active Substance: RUXOLITINIB
     Dosage: 20 MG, UNK
     Route: 048
     Dates: start: 20171012
  2. JAKAVI [Suspect]
     Active Substance: RUXOLITINIB
     Dosage: 20 MG, UNK
     Route: 048
     Dates: end: 20181013
  3. JAKAVI [Suspect]
     Active Substance: RUXOLITINIB
     Dosage: UNK
     Route: 048
     Dates: end: 20181220
  4. BENZBROMARONE [Concomitant]
     Active Substance: BENZBROMARONE
     Indication: PRODUCT USED FOR UNKNOWN INDICATION
     Dosage: 100 MG, QD
     Route: 065
  5. JAKAVI [Suspect]
     Active Substance: RUXOLITINIB
     Indication: PRIMARY MYELOFIBROSIS
     Dosage: 20 MG, UNK
     Route: 048
     Dates: start: 20170525
  6. JAKAVI [Suspect]
     Active Substance: RUXOLITINIB
     Dosage: UNK
     Route: 048
  7. JAKAVI [Suspect]
     Active Substance: RUXOLITINIB
     Dosage: 20 MG, UNK
     Route: 048
     Dates: end: 20181213

REACTIONS (28)
  - Pneumonia [Recovered/Resolved]
  - Prothrombin time prolonged [Unknown]
  - Procalcitonin increased [Unknown]
  - Red cell distribution width increased [Unknown]
  - Abdominal pain [Recovered/Resolved]
  - Haemoglobin decreased [Unknown]
  - Pneumonitis [Recovered/Resolved]
  - Red blood cell count decreased [Unknown]
  - General physical health deterioration [Fatal]
  - Brain natriuretic peptide increased [Unknown]
  - Blood urea increased [Unknown]
  - Haematocrit decreased [Unknown]
  - White blood cell count decreased [Unknown]
  - Fibrin D dimer increased [Unknown]
  - Aspartate aminotransferase increased [Unknown]
  - Blood lactic acid increased [Unknown]
  - Activated partial thromboplastin time prolonged [Unknown]
  - Blood creatinine increased [Unknown]
  - International normalised ratio increased [Unknown]
  - Platelet count decreased [Fatal]
  - Pneumonia [Fatal]
  - Reticulocyte count increased [Unknown]
  - Neutrophil count decreased [Unknown]
  - Ecchymosis [Recovered/Resolved]
  - Pyrexia [Fatal]
  - C-reactive protein increased [Unknown]
  - Dyspnoea [Fatal]
  - Lymphocyte count decreased [Unknown]

NARRATIVE: CASE EVENT DATE: 20180823
